FAERS Safety Report 7863076-5 (Version None)
Quarter: 2011Q4

REPORT INFORMATION
  Report Type: 
  Country: None (occurrence: None)
  Receive Date: 20111027
  Receipt Date: 20101124
  Transmission Date: 20120403
  Serious: No
  Sender: FDA-Public Use
  Company Number: US-AMGEN-USASP2010006532

PATIENT
  Sex: Female

DRUGS (2)
  1. INFLUENZA VACCINE [Concomitant]
  2. ENBREL [Suspect]
     Indication: RHEUMATOID ARTHRITIS
     Dates: start: 20030901

REACTIONS (2)
  - VIRAL INFECTION [None]
  - PNEUMONIA [None]
